FAERS Safety Report 6626993-X (Version None)
Quarter: 2010Q1

REPORT INFORMATION
  Report Type: 
  Country: None (occurrence: None)
  Receive Date: 20100308
  Receipt Date: 20100219
  Transmission Date: 20100710
  Serious: Yes (Disabling, Other)
  Sender: FDA-Public Use
  Company Number: 09-AUR-08829

PATIENT
  Age: 85 Year
  Sex: Male

DRUGS (11)
  1. SIMVASTATIN [Suspect]
     Indication: ATRIAL FIBRILLATION
     Dosage: 40MG, ORAL
     Route: 048
     Dates: end: 20081101
  2. VERAPAMIL [Suspect]
     Indication: ATRIAL FIBRILLATION
     Dosage: 40MG, TID, ORAL
     Route: 048
     Dates: start: 20080801
  3. ASPIRIN [Concomitant]
  4. BRIMONIDINE [Concomitant]
  5. BECLOMETHASONE DIPROPIONATE [Concomitant]
  6. FUROSEMIDE [Concomitant]
  7. LISINOPRIL [Concomitant]
  8. ACETAMINOPHEN AND CODEINE PHOSPHATE [Concomitant]
  9. SALBUTAMOL [Concomitant]
  10. SALMETEROL [Concomitant]
  11. ACETAMINOPHEN AND CODEINE PHOSPHATE [Concomitant]

REACTIONS (2)
  - HYPOKINESIA [None]
  - MYOSITIS [None]
